FAERS Safety Report 5671012-5 (Version None)
Quarter: 2008Q1

REPORT INFORMATION
  Report Type: 
  Country: None (occurrence: None)
  Receive Date: 20080313
  Receipt Date: 20080303
  Transmission Date: 20080703
  Serious: Yes (Hospitalization)
  Sender: FDA-Public Use
  Company Number: 2007BI026197

PATIENT
  Age: 51 Year
  Sex: Female

DRUGS (1)
  1. AVONEX [Suspect]
     Indication: MULTIPLE SCLEROSIS
     Dosage: 30 UG; QW; IM
     Route: 030
     Dates: start: 20050817

REACTIONS (5)
  - ARTERIOSCLEROSIS [None]
  - HEPATIC LESION [None]
  - KIDNEY SMALL [None]
  - RENAL ARTERY STENOSIS [None]
  - THROMBOSIS [None]
